FAERS Safety Report 7214720-7 (Version None)
Quarter: 2011Q1

REPORT INFORMATION
  Report Type: 
  Country: None (occurrence: None)
  Receive Date: 20110107
  Receipt Date: 20091221
  Transmission Date: 20110831
  Serious: No
  Sender: FDA-Public Use
  Company Number: A0836199A

PATIENT
  Age: 68 Year
  Sex: Male

DRUGS (10)
  1. LOVAZA [Suspect]
     Dosage: 2G TWICE PER DAY
     Route: 048
  2. ASPIRIN [Concomitant]
  3. COUMADIN [Concomitant]
  4. UNKNOWN MEDICATION [Concomitant]
  5. TIKOSYN [Concomitant]
     Dosage: 500MCG TWICE PER DAY
  6. WELLBUTRIN [Concomitant]
  7. VYTORIN [Concomitant]
  8. TOPROL-XL [Concomitant]
  9. REMERON [Concomitant]
  10. NORCO [Concomitant]

REACTIONS (2)
  - FLATULENCE [None]
  - ARTHRALGIA [None]
